FAERS Safety Report 12137457 (Version 3)
Quarter: 2016Q1

REPORT INFORMATION
  Report Type: Spontaneous
  Country: JP (occurrence: JP)
  Receive Date: 20160302
  Receipt Date: 20160330
  Transmission Date: 20160526
  Serious: Yes (Death)
  Sender: FDA-Public Use
  Company Number: JP-SA-2016SA038454

PATIENT
  Sex: Female
  Weight: 33 kg

DRUGS (9)
  1. XELODA [Suspect]
     Active Substance: CAPECITABINE
     Indication: COLON CANCER
     Route: 048
     Dates: start: 20160204, end: 20160214
  2. PLATELETS [Concomitant]
     Active Substance: HUMAN PLATELET, ALLOGENIC
     Dates: start: 20160217, end: 20160219
  3. FOY [Concomitant]
     Active Substance: GABEXATE MESYLATE
     Dates: start: 20160218
  4. RECOMODULIN [Concomitant]
     Active Substance: THROMBOMODULIN ALFA
     Dates: start: 20160218
  5. ELPLAT [Suspect]
     Active Substance: OXALIPLATIN
     Indication: COLON CANCER
     Route: 041
     Dates: start: 20160204, end: 20160204
  6. GRANISETRON [Concomitant]
     Active Substance: GRANISETRON
  7. EMEND [Concomitant]
     Active Substance: APREPITANT
     Dates: start: 20160204, end: 20160206
  8. DEXART [Concomitant]
     Active Substance: DEXAMETHASONE SODIUM PHOSPHATE
     Dates: start: 20160204, end: 20160204
  9. PLASMA, FRESH FROZEN [Concomitant]
     Active Substance: HUMAN PLASMA
     Dates: start: 20160217, end: 20160219

REACTIONS (9)
  - Disseminated intravascular coagulation [Fatal]
  - Malaise [Unknown]
  - Neutrophil count decreased [Fatal]
  - Mucous membrane disorder [Unknown]
  - Sepsis [Fatal]
  - Acute kidney injury [Fatal]
  - Platelet count decreased [Fatal]
  - White blood cell count decreased [Fatal]
  - Decreased appetite [Unknown]

NARRATIVE: CASE EVENT DATE: 20160217
